FAERS Safety Report 7255975-2 (Version None)
Quarter: 2011Q1

REPORT INFORMATION
  Report Type: 
  Country: None (occurrence: None)
  Receive Date: 20110129
  Receipt Date: 20100506
  Transmission Date: 20110831
  Serious: No
  Sender: FDA-Public Use
  Company Number: US-ABBOTT-10P-163-0643274-00

PATIENT
  Age: 24 Year
  Sex: Female

DRUGS (4)
  1. ATIVAN [Concomitant]
     Indication: ANXIETY
  2. CIPRO [Concomitant]
     Indication: CROHN'S DISEASE
  3. HUMIRA [Suspect]
     Indication: CROHN'S DISEASE
     Dates: start: 20100415
  4. TINDAMAX [Concomitant]
     Indication: PRODUCT USED FOR UNKNOWN INDICATION

REACTIONS (12)
  - FEELING HOT [None]
  - PYREXIA [None]
  - SWELLING [None]
  - INJECTION SITE INDURATION [None]
  - MOOD ALTERED [None]
  - INJECTION SITE PAIN [None]
  - PAIN [None]
  - INJECTION SITE HAEMATOMA [None]
  - INJECTION SITE ERYTHEMA [None]
  - INJECTION SITE WARMTH [None]
  - FATIGUE [None]
  - INJECTION SITE URTICARIA [None]
